FAERS Safety Report 4921307-5 (Version None)
Quarter: 2006Q1

REPORT INFORMATION
  Report Type: 
  Country: None (occurrence: None)
  Receive Date: 20060221
  Receipt Date: 20060210
  Transmission Date: 20060701
  Serious: Yes (Hospitalization)
  Sender: FDA-Public Use
  Company Number: 2006021356

PATIENT
  Sex: 0

DRUGS (5)
  1. CARDENALIN (DOXAZOSIN) [Suspect]
     Indication: ILL-DEFINED DISORDER
     Dosage: 4 MG, ORAL
     Route: 048
     Dates: start: 20060124, end: 20060126
  2. BLINDED THERAPY (BLINDED THERAPY) [Suspect]
     Indication: DIABETIC NEPHROPATHY
     Dosage: SEE IMAGE
     Route: 048
     Dates: start: 20050808, end: 20051030
  3. BLINDED THERAPY (BLINDED THERAPY) [Suspect]
     Indication: DIABETIC NEPHROPATHY
     Dosage: SEE IMAGE
     Route: 048
     Dates: start: 20051031, end: 20051218
  4. BLINDED THERAPY (BLINDED THERAPY) [Suspect]
     Indication: DIABETIC NEPHROPATHY
     Dosage: SEE IMAGE
     Route: 048
     Dates: start: 20051219
  5. AMLODIPINE BESILATE (AMLODIPINE) [Concomitant]

REACTIONS (6)
  - BLOOD PRESSURE INCREASED [None]
  - CEREBRAL ARTERY STENOSIS [None]
  - CEREBRAL INFARCTION [None]
  - DYSARTHRIA [None]
  - MOVEMENT DISORDER [None]
  - NAUSEA [None]
